FAERS Safety Report 20877737 (Version 2)
Quarter: 2022Q2

REPORT INFORMATION
  Report Type: Spontaneous
  Country: US (occurrence: US)
  Receive Date: 20220526
  Receipt Date: 20220530
  Transmission Date: 20220720
  Serious: Yes (Hospitalization, Other)
  Sender: FDA-Public Use
  Company Number: US-PFIZER INC-202200708489

PATIENT
  Age: 56 Year
  Sex: Male

DRUGS (1)
  1. TOBRAMYCIN [Suspect]
     Active Substance: TOBRAMYCIN
     Indication: Mycobacterium chelonae infection
     Dosage: UNK
     Route: 042
     Dates: start: 20200123

REACTIONS (3)
  - Renal injury [Not Recovered/Not Resolved]
  - Ototoxicity [Not Recovered/Not Resolved]
  - Toxicity to various agents [Unknown]
